FAERS Safety Report 6768667-0 (Version None)
Quarter: 2010Q2

REPORT INFORMATION
  Report Type: 
  Country: None (occurrence: None)
  Receive Date: 20100614
  Receipt Date: 20100602
  Transmission Date: 20101027
  Serious: Yes (Other)
  Sender: FDA-Public Use
  Company Number: US-PFIZER INC-2010069011

PATIENT
  Sex: Female
  Weight: 58.95 kg

DRUGS (3)
  1. CHANTIX [Suspect]
     Indication: SMOKING CESSATION THERAPY
     Dosage: UNK
     Route: 048
     Dates: start: 20050101
  2. WELLBUTRIN [Suspect]
     Indication: SMOKING CESSATION THERAPY
     Dosage: UNK
     Route: 048
  3. TERBINAFINE HYDROCHLORIDE [Concomitant]
     Indication: TINEA PEDIS
     Dosage: 250 MG, 1X/DAY
     Route: 048

REACTIONS (2)
  - CONFUSIONAL STATE [None]
  - DEPRESSION [None]
